FAERS Safety Report 24156338 (Version 1)
Quarter: 2024Q3

REPORT INFORMATION
  Report Type: Spontaneous
  Country: IT (occurrence: IT)
  Receive Date: 20240731
  Receipt Date: 20240731
  Transmission Date: 20241017
  Serious: Yes (Other)
  Sender: MYLAN
  Company Number: None

PATIENT
  Age: 17 Year
  Sex: Female

DRUGS (3)
  1. QUETIAPINE [Suspect]
     Active Substance: QUETIAPINE
     Indication: Anorexia nervosa
     Dosage: 125 MILLIGRAM, QD ( 2 TABLETS OF 50 MG EACH + 1 TABLET OF 25 MG, PER DAY)
     Route: 048
  2. SERTRALINE [Suspect]
     Active Substance: SERTRALINE HYDROCHLORIDE
     Indication: Anorexia nervosa
     Dosage: 50 MILLIGRAM (TREATMENT START DATE ASSIGNED AUTOMATICALLY)
     Route: 048
  3. LORAZEPAM [Suspect]
     Active Substance: LORAZEPAM
     Indication: Anorexia nervosa
     Dosage: 45 GTT DROPS (TREATMENT START DATE ASSIGNED AUTOMATICALLY)
     Route: 048

REACTIONS (1)
  - Urinary retention [Recovered/Resolved]

NARRATIVE: CASE EVENT DATE: 20240415
